FAERS Safety Report 5142303-1 (Version None)
Quarter: 2006Q4

REPORT INFORMATION
  Report Type: 
  Country: None (occurrence: None)
  Receive Date: 20061027
  Receipt Date: 20061012
  Transmission Date: 20070319
  Serious: Yes (Hospitalization)
  Sender: FDA-Public Use
  Company Number: PAR_0872_2006

PATIENT
  Age: 64 Year
  Sex: Female
  Weight: 135.1719 kg

DRUGS (8)
  1. QUESTRAN [Suspect]
     Indication: HYPERLIPIDAEMIA
     Dosage: 1 DF BID PO
     Route: 048
     Dates: start: 20060601
  2. TRICOR [Suspect]
     Indication: HYPERLIPIDAEMIA
     Dosage: 160 MG QDAY PO
     Route: 048
  3. METFORMIN [Concomitant]
  4. ACTOS [Concomitant]
  5. LOTREL [Concomitant]
  6. LANTUS [Concomitant]
  7. NEURONTIN [Concomitant]
  8. METOPROLOL TARTRATE [Concomitant]

REACTIONS (2)
  - DRUG INTERACTION [None]
  - RHABDOMYOLYSIS [None]
